FAERS Safety Report 9299883 (Version 3)
Quarter: 2013Q4

REPORT INFORMATION
  Report Type: Spontaneous
  Country: US (occurrence: None)
  Receive Date: 20121227
  Receipt Date: 20131226
  Transmission Date: 20140711
  Serious: Yes (Other)
  Sender: FDA-Public Use
  Company Number: PHEH2012US023087

PATIENT
  Age: 12 Year
  Sex: Female

DRUGS (1)
  1. AFINITOR (RAD) UNKNOWN [Suspect]
     Indication: ASTROCYTOMA, LOW GRADE
     Route: 048
     Dates: start: 20121015

REACTIONS (3)
  - Conjunctivitis [None]
  - Petit mal epilepsy [None]
  - Acne [None]
